FAERS Safety Report 8853220 (Version 1)
Quarter: 2012Q4

REPORT INFORMATION
  Report Type: Report from Study
  Country: US (occurrence: US)
  Receive Date: 20121022
  Receipt Date: 20121022
  Transmission Date: 20130627
  Serious: Yes (Death, Other)
  Sender: FDA-Public Use
  Company Number: US-ABBOTT-12P-163-0997590-00

PATIENT
  Age: 38 None
  Sex: Female

DRUGS (1)
  1. HUMIRA PEN [Suspect]
     Indication: RHEUMATOID ARTHRITIS
     Dates: end: 2008

REACTIONS (2)
  - Pulmonary embolism [Fatal]
  - Renal disorder [Unknown]
